FAERS Safety Report 7026270-1 (Version None)
Quarter: 2010Q4

REPORT INFORMATION
  Report Type: 
  Country: None (occurrence: None)
  Receive Date: 20101004
  Receipt Date: 20100924
  Transmission Date: 20110411
  Serious: Yes (Hospitalization)
  Sender: FDA-Public Use
  Company Number: FR-ELI_LILLY_AND_COMPANY-FR201009006512

PATIENT
  Sex: Male

DRUGS (3)
  1. HUMALOG [Suspect]
     Route: 058
     Dates: start: 20080228
  2. LANTUS [Concomitant]
     Indication: TYPE 1 DIABETES MELLITUS
     Dosage: UNK, UNK
     Route: 058
     Dates: start: 20080228
  3. NOVORAPID [Concomitant]
     Route: 058

REACTIONS (1)
  - EVANS SYNDROME [None]
